FAERS Safety Report 8461784-9 (Version None)
Quarter: 2012Q2

REPORT INFORMATION
  Report Type: 
  Country: None (occurrence: None)
  Receive Date: 20120625
  Receipt Date: 20120615
  Transmission Date: 20120825
  Serious: Yes (Hospitalization)
  Sender: FDA-Public Use
  Company Number: US-BAYER-2012-006021

PATIENT
  Age: 29 Year
  Sex: Female
  Weight: 64 kg

DRUGS (5)
  1. MULTI-VITAMINS [Concomitant]
     Dosage: 1 TAB DAILY
     Route: 048
  2. NAPROXEN (ALEVE) [Concomitant]
     Dosage: UNK UNK, PRN
  3. CALCIUM +VIT D [Concomitant]
     Dosage: 1 TAB DAILY
     Route: 048
  4. FISH OIL [Concomitant]
     Dosage: 1 TAB DAILY
     Route: 048
  5. YAZ [Suspect]
     Indication: CONTRACEPTION
     Dates: start: 20071219, end: 20110117

REACTIONS (3)
  - INJURY [None]
  - GALLBLADDER DISORDER [None]
  - CHOLECYSTITIS CHRONIC [None]
